FAERS Safety Report 20075201 (Version 1)
Quarter: 2021Q4

REPORT INFORMATION
  Report Type: Spontaneous
  Country: None (occurrence: US)
  Receive Date: 20211116
  Receipt Date: 20211116
  Transmission Date: 20220303
  Serious: Yes (Hospitalization)
  Sender: FDA-Public Use
  Company Number: US-Avion Pharmaceuticals, LLC-2121716

PATIENT
  Age: 84 Year
  Sex: Male

DRUGS (2)
  1. GLOPERBA [Suspect]
     Active Substance: COLCHICINE
     Indication: Myocarditis
     Route: 065
  2. ASPIRIN [Concomitant]
     Active Substance: ASPIRIN
     Route: 065

REACTIONS (8)
  - Cardiac failure congestive [Unknown]
  - Decreased appetite [Recovered/Resolved]
  - Dysgeusia [Recovered/Resolved]
  - Weight decreased [Unknown]
  - Ejection fraction decreased [Unknown]
  - Pericardial effusion [Unknown]
  - Cerebrovascular accident [Unknown]
  - Muscle atrophy [Unknown]
